FAERS Safety Report 5751126-1 (Version None)
Quarter: 2008Q2

REPORT INFORMATION
  Report Type: 
  Country: None (occurrence: None)
  Receive Date: 20080528
  Receipt Date: 20080519
  Transmission Date: 20081010
  Serious: Yes (Hospitalization)
  Sender: FDA-Public Use
  Company Number: US-ELI_LILLY_AND_COMPANY-US200805003856

PATIENT
  Sex: Male

DRUGS (2)
  1. FORTEO [Suspect]
     Dates: start: 20080201, end: 20080327
  2. PERCOCET [Concomitant]
     Indication: ANALGESIA

REACTIONS (7)
  - MALAISE [None]
  - PAIN [None]
  - PANIC ATTACK [None]
  - PNEUMONIA [None]
  - RENAL FUNCTION TEST ABNORMAL [None]
  - SPINAL FRACTURE [None]
  - STAPHYLOCOCCAL INFECTION [None]
